FAERS Safety Report 25470344 (Version 3)
Quarter: 2025Q4

REPORT INFORMATION
  Report Type: Spontaneous
  Country: EU (occurrence: EU)
  Receive Date: 20250623
  Receipt Date: 20251128
  Transmission Date: 20260118
  Serious: Yes (Death)
  Sender: NOVARTIS
  Company Number: None

PATIENT
  Age: 60 Year
  Sex: Male
  Weight: 93 kg

DRUGS (17)
  1. SIMULECT [Suspect]
     Active Substance: BASILIXIMAB
     Indication: Renal transplant
     Dosage: 20 MG (TOTAL)
     Route: 042
     Dates: start: 20250523, end: 20250523
  2. CIMETIDINE [Suspect]
     Active Substance: CIMETIDINE
     Indication: Gastrooesophageal reflux disease
     Dosage: 20 MG (TOTAL)
     Route: 048
     Dates: start: 20250523, end: 20250523
  3. METHYLPREDNISOLONE [Suspect]
     Active Substance: METHYLPREDNISOLONE
     Indication: Renal transplant
     Dosage: 500 MG (TOTAL)
     Route: 042
     Dates: start: 20250523, end: 20250523
  4. PROGRAF [Suspect]
     Active Substance: TACROLIMUS
     Indication: Renal transplant
     Dosage: 4.5 MG (TOTAL)
     Route: 048
     Dates: start: 20250523, end: 20250523
  5. CELLCEPT [Suspect]
     Active Substance: MYCOPHENOLATE MOFETIL
     Indication: Renal transplant
     Dosage: 1 G, (TOTAL),  COMPRIM?
     Route: 048
     Dates: start: 20250523, end: 20250523
  6. ENTRESTO [Concomitant]
     Active Substance: SACUBITRIL\VALSARTAN
     Indication: Product used for unknown indication
     Dosage: UNK
     Route: 065
  7. BISOPROLOL [Concomitant]
     Active Substance: BISOPROLOL
     Indication: Product used for unknown indication
     Dosage: UNK
     Route: 065
  8. AMLODIPINE [Concomitant]
     Active Substance: AMLODIPINE BESYLATE
     Indication: Product used for unknown indication
     Dosage: UNK
     Route: 065
  9. KARDEGIC [Concomitant]
     Active Substance: ASPIRIN DL-LYSINE
     Indication: Product used for unknown indication
     Dosage: UNK
     Route: 065
  10. PANTOPRAZOLE [Concomitant]
     Active Substance: PANTOPRAZOLE
     Indication: Product used for unknown indication
     Dosage: UNK
     Route: 065
  11. KAYEXALATE [Concomitant]
     Active Substance: SODIUM POLYSTYRENE SULFONATE
     Indication: Product used for unknown indication
     Dosage: UNK
     Route: 065
  12. RENVELA [Concomitant]
     Active Substance: SEVELAMER CARBONATE
     Indication: Product used for unknown indication
     Dosage: UNK
     Route: 065
  13. ARANESP [Concomitant]
     Active Substance: DARBEPOETIN ALFA
     Indication: Product used for unknown indication
     Dosage: UNK
     Route: 065
  14. CYANOCOBALAMIN [Concomitant]
     Active Substance: CYANOCOBALAMIN
     Indication: Product used for unknown indication
     Dosage: UNK
     Route: 065
  15. LEVOLEUCOVORIN CALCIUM [Concomitant]
     Active Substance: LEVOLEUCOVORIN CALCIUM
     Indication: Product used for unknown indication
     Dosage: UNK
     Route: 065
  16. LEVOCARNITINE [Concomitant]
     Active Substance: LEVOCARNITINE
     Indication: Product used for unknown indication
     Dosage: UNK
     Route: 065
  17. LOVENOX [Concomitant]
     Active Substance: ENOXAPARIN SODIUM
     Indication: Product used for unknown indication
     Dosage: UNK
     Route: 065

REACTIONS (1)
  - Anaphylactic shock [Fatal]

NARRATIVE: CASE EVENT DATE: 20250523
